FAERS Safety Report 8218168-8 (Version None)
Quarter: 2012Q1

REPORT INFORMATION
  Report Type: 
  Country: None (occurrence: None)
  Receive Date: 20120316
  Receipt Date: 20120316
  Transmission Date: 20120608
  Serious: No
  Sender: FDA-Public Use
  Company Number: None

PATIENT
  Age: 58 Year
  Sex: Male
  Weight: 99.9 kg

DRUGS (1)
  1. CLONIDINE [Suspect]
     Dosage: 0.1 MG ONCE PO
     Route: 048
     Dates: start: 20110923, end: 20110923

REACTIONS (1)
  - SWELLING [None]
